FAERS Safety Report 8584865 (Version 3)
Quarter: 2012Q4

REPORT INFORMATION
  Report Type: 
  Country: JP (occurrence: JP)
  Receive Date: 20120530
  Receipt Date: 20121003
  Transmission Date: 20130627
  Serious: Yes (Life-Threatening, Hospitalization, Other)
  Sender: FDA-Public Use
  Company Number: JP-AMGEN-JPNSP2012032662

PATIENT
  Age: 60 Year
  Sex: Female
  Weight: 56 kg

DRUGS (6)
  1. ENBREL [Suspect]
     Indication: RHEUMATOID ARTHRITIS
     Dosage: 25 mg, 2x/week
     Route: 058
     Dates: start: 20090702, end: 20120521
  2. RHEUMATREX                         /00113801/ [Concomitant]
     Dosage: UNK
  3. PREDONINE /00016201/ [Concomitant]
     Dosage: UNK
  4. LORCAM [Concomitant]
     Dosage: UNK
  5. FOLIAMIN [Concomitant]
     Dosage: UNK
  6. MUCOSTA [Concomitant]
     Dosage: UNK

REACTIONS (1)
  - Breast cancer [Recovering/Resolving]
